FAERS Safety Report 9353002 (Version 1)
Quarter: 2013Q2

REPORT INFORMATION
  Report Type: Spontaneous
  Country: US (occurrence: US)
  Receive Date: 20130618
  Receipt Date: 20130618
  Transmission Date: 20140414
  Serious: No
  Sender: FDA-Public Use
  Company Number: US-009507513-1306USA005482

PATIENT
  Sex: Female

DRUGS (2)
  1. ZOCOR [Suspect]
     Dosage: UNK
  2. ZOCOR [Suspect]
     Dosage: UNK
     Dates: end: 20130528

REACTIONS (2)
  - Intraocular pressure increased [Unknown]
  - Vertigo [Unknown]
